FAERS Safety Report 20703107 (Version 6)
Quarter: 2024Q1

REPORT INFORMATION
  Report Type: Other
  Country: US (occurrence: None)
  Receive Date: 20220413
  Receipt Date: 20240214
  Transmission Date: 20240410
  Serious: Yes (Hospitalization, Other)
  Sender: FDA-Public Use
  Company Number: US-ROCHE-3071392

PATIENT
  Age: 56 Year
  Sex: Female
  Weight: 74.002 kg

DRUGS (16)
  1. OCREVUS [Suspect]
     Active Substance: OCRELIZUMAB
     Indication: Primary progressive multiple sclerosis
     Dosage: PATIENT REPORTED IT WAS HALF DOSE ? THEN SUBSEQUENTLY 600 MG EVERY 6 MONTHS?LAST OCREVUS INFUSION WA
     Route: 042
     Dates: start: 20210920
  2. PREDNISONE [Suspect]
     Active Substance: PREDNISONE
     Indication: Product used for unknown indication
     Dosage: TOTAL OF 1000 MG FOR 3 DAYS
     Route: 065
  3. BIOTIN [Concomitant]
     Active Substance: BIOTIN
  4. HYDROCHLOROTHIAZIDE [Concomitant]
     Active Substance: HYDROCHLOROTHIAZIDE
  5. MIRALAX [Concomitant]
     Active Substance: POLYETHYLENE GLYCOL 3350
  6. FAMOTIDINE [Concomitant]
     Active Substance: FAMOTIDINE
  7. CIDER VINEGAR EX [Concomitant]
  8. VITAMIN D3 [Concomitant]
     Active Substance: CHOLECALCIFEROL
  9. LINZESS [Concomitant]
     Active Substance: LINACLOTIDE
  10. OMEPRAZOLE [Concomitant]
     Active Substance: OMEPRAZOLE
  11. ALPHA LIPOIC ACID [Concomitant]
     Active Substance: .ALPHA.-LIPOIC ACID
  12. CALCIUM [Concomitant]
     Active Substance: CALCIUM
  13. FIBER [Concomitant]
  14. L-GLUTAMINE [Concomitant]
  15. MAGNESIUM OXIDE [Concomitant]
     Active Substance: MAGNESIUM OXIDE
  16. VALACYCLOVIR [Concomitant]
     Active Substance: VALACYCLOVIR HYDROCHLORIDE

REACTIONS (43)
  - Clostridium difficile colitis [Recovered/Resolved]
  - Fall [Unknown]
  - Cerebral disorder [Unknown]
  - Swelling face [Not Recovered/Not Resolved]
  - Erythema [Not Recovered/Not Resolved]
  - Head injury [Recovered/Resolved]
  - Dyspnoea [Recovered/Resolved]
  - Osteoarthritis [Not Recovered/Not Resolved]
  - Nausea [Recovered/Resolved]
  - Headache [Recovered/Resolved]
  - Oropharyngeal pain [Not Recovered/Not Resolved]
  - Ear discomfort [Recovered/Resolved]
  - Gastrointestinal disorder [Not Recovered/Not Resolved]
  - Abdominal distension [Not Recovered/Not Resolved]
  - Flushing [Recovered/Resolved]
  - Productive cough [Not Recovered/Not Resolved]
  - Cough [Not Recovered/Not Resolved]
  - Dysphonia [Not Recovered/Not Resolved]
  - Balance disorder [Not Recovered/Not Resolved]
  - Abdominal pain [Not Recovered/Not Resolved]
  - Blindness [Recovered/Resolved]
  - Irritable bowel syndrome [Not Recovered/Not Resolved]
  - Throat irritation [Recovered/Resolved]
  - Feeling abnormal [Recovered/Resolved]
  - Nerve injury [Not Recovered/Not Resolved]
  - Macule [Not Recovered/Not Resolved]
  - Strabismus [Recovered/Resolved]
  - Ear pain [Recovered/Resolved]
  - Memory impairment [Not Recovered/Not Resolved]
  - Apathy [Not Recovered/Not Resolved]
  - Drug ineffective [Unknown]
  - White blood cell count increased [Unknown]
  - Cystitis [Unknown]
  - Neck injury [Not Recovered/Not Resolved]
  - Back pain [Unknown]
  - Pain in extremity [Unknown]
  - Choking [Not Recovered/Not Resolved]
  - Gait disturbance [Not Recovered/Not Resolved]
  - Arthralgia [Not Recovered/Not Resolved]
  - Asthenia [Not Recovered/Not Resolved]
  - Hip fracture [Not Recovered/Not Resolved]
  - Increased tendency to bruise [Not Recovered/Not Resolved]
  - Spinal column injury [Unknown]

NARRATIVE: CASE EVENT DATE: 20211101
